FAERS Safety Report 9782688 (Version 1)
Quarter: 2013Q4

REPORT INFORMATION
  Report Type: Spontaneous
  Country: BR (occurrence: BR)
  Receive Date: 20131226
  Receipt Date: 20131226
  Transmission Date: 20140711
  Serious: Yes (Other)
  Sender: FDA-Public Use
  Company Number: PHHY2013BR152008

PATIENT
  Age: 39 Year
  Sex: Male

DRUGS (2)
  1. DIOVAN [Suspect]
  2. ENBREL [Suspect]
     Indication: PSORIASIS
     Dosage: 25 MG, QW

REACTIONS (4)
  - Psoriasis [Unknown]
  - Rash macular [Unknown]
  - Oropharyngeal pain [Unknown]
  - Influenza [Unknown]
